FAERS Safety Report 5339750-1 (Version None)
Quarter: 2007Q2

REPORT INFORMATION
  Report Type: 
  Country: None (occurrence: None)
  Receive Date: 20070531
  Receipt Date: 20070525
  Transmission Date: 20071010
  Serious: Yes (Life-Threatening, Hospitalization)
  Sender: FDA-Public Use
  Company Number: PHBS2007TR08811

PATIENT
  Age: 56 Year
  Sex: Female

DRUGS (3)
  1. METOPROLOL SUCCINATE [Suspect]
     Indication: HYPERTENSION
     Dosage: 1500 MG, ONCE/SINGLE
     Route: 048
  2. RAMIPRIL [Concomitant]
     Indication: HYPERTENSION
  3. TIOTROPIUM BROMIDE [Concomitant]
     Indication: ASTHMA

REACTIONS (24)
  - ACUTE MYOCARDIAL INFARCTION [None]
  - AGITATION [None]
  - ARRHYTHMIA [None]
  - BLOOD CREATINE PHOSPHOKINASE INCREASED [None]
  - BLOOD CREATINE PHOSPHOKINASE MB INCREASED [None]
  - BRADYCARDIA [None]
  - CHEST PAIN [None]
  - CONFUSIONAL STATE [None]
  - CORONARY ARTERY OCCLUSION [None]
  - DISORIENTATION [None]
  - DRUG TOXICITY [None]
  - EJECTION FRACTION DECREASED [None]
  - ELECTROCARDIOGRAM ST SEGMENT ELEVATION [None]
  - ELECTROCARDIOGRAM T WAVE INVERSION [None]
  - GLASGOW COMA SCALE ABNORMAL [None]
  - HYPERTENSION [None]
  - HYPOTENSION [None]
  - HYPOTHERMIA [None]
  - MITRAL VALVE INCOMPETENCE [None]
  - MYOGLOBIN BLOOD INCREASED [None]
  - PACEMAKER GENERATED RHYTHM [None]
  - SUICIDE ATTEMPT [None]
  - TROPONIN I INCREASED [None]
  - VENTRICULAR HYPOKINESIA [None]
